FAERS Safety Report 15865171 (Version 2)
Quarter: 2019Q1

REPORT INFORMATION
  Report Type: Spontaneous
  Country: US (occurrence: US)
  Receive Date: 20190124
  Receipt Date: 20190124
  Transmission Date: 20190417
  Serious: Yes (Hospitalization)
  Sender: FDA-Public Use
  Company Number: US-VIFOR (INTERNATIONAL) INC.-VIT-2019-00357

PATIENT
  Age: 75 Year
  Sex: Female

DRUGS (39)
  1. ALLOPURINOL. [Concomitant]
     Active Substance: ALLOPURINOL
  2. BUSPIRONE HCL [Concomitant]
     Active Substance: BUSPIRONE HYDROCHLORIDE
  3. CALCIUM CARBONATE. [Concomitant]
     Active Substance: CALCIUM CARBONATE
  4. KIONEX [Concomitant]
     Active Substance: SODIUM POLYSTYRENE SULFONATE
  5. ENDOCET [Concomitant]
     Active Substance: ACETAMINOPHEN\OXYCODONE HYDROCHLORIDE
  6. VITAMIN B12 [Concomitant]
     Active Substance: CYANOCOBALAMIN
  7. VELTASSA [Suspect]
     Active Substance: PATIROMER
     Indication: CHRONIC KIDNEY DISEASE
  8. ASPIRIN. [Concomitant]
     Active Substance: ASPIRIN
  9. FERAHEME [Concomitant]
     Active Substance: FERUMOXYTOL NON-STOICHIOMETRIC MAGNETITE
  10. ISOSORBIDE MONONITRATE. [Concomitant]
     Active Substance: ISOSORBIDE MONONITRATE
  11. VELTASSA [Suspect]
     Active Substance: PATIROMER
     Indication: HYPERKALAEMIA
     Route: 048
     Dates: start: 20160325
  12. KETOCONAZOLE. [Concomitant]
     Active Substance: KETOCONAZOLE
  13. OMEPRAZOLE. [Concomitant]
     Active Substance: OMEPRAZOLE
  14. AMOXICILLIN. [Concomitant]
     Active Substance: AMOXICILLIN
  15. BUMETANIDE. [Concomitant]
     Active Substance: BUMETANIDE
  16. FLUOROURACIL. [Concomitant]
     Active Substance: FLUOROURACIL
  17. HYDROXYZINE HCL [Concomitant]
     Active Substance: HYDROXYZINE HYDROCHLORIDE
  18. LEVOTHYROXINE SODIUM. [Concomitant]
     Active Substance: LEVOTHYROXINE SODIUM
  19. NOVOLIN [Concomitant]
     Active Substance: INSULIN HUMAN
     Dosage: 70/30
  20. RANEXA [Concomitant]
     Active Substance: RANOLAZINE
  21. CARVEDILOL. [Concomitant]
     Active Substance: CARVEDILOL
  22. CIPROFLOXACIN HCL [Concomitant]
     Active Substance: CIPROFLOXACIN HYDROCHLORIDE
  23. PLAVIX [Concomitant]
     Active Substance: CLOPIDOGREL BISULFATE
  24. VELTASSA [Suspect]
     Active Substance: PATIROMER
     Indication: ESSENTIAL HYPERTENSION
  25. CALCITRATE [Concomitant]
     Active Substance: CALCIUM CITRATE
  26. GABAPENTIN. [Concomitant]
     Active Substance: GABAPENTIN
  27. HYDROXYZINE PAMOATE. [Concomitant]
     Active Substance: HYDROXYZINE PAMOATE
  28. MIDODRINE HCL [Concomitant]
     Active Substance: MIDODRINE HYDROCHLORIDE
  29. VITAMIN D3 [Concomitant]
     Active Substance: CHOLECALCIFEROL
  30. COLCRYS [Concomitant]
     Active Substance: COLCHICINE
  31. CYCLOBENZAPRINE HCL [Concomitant]
     Active Substance: CYCLOBENZAPRINE HYDROCHLORIDE
  32. FENOFIBRATE. [Concomitant]
     Active Substance: FENOFIBRATE
  33. LISINOPRIL. [Concomitant]
     Active Substance: LISINOPRIL
  34. NORTRIPTYLINE HCL [Concomitant]
     Active Substance: NORTRIPTYLINE HYDROCHLORIDE
  35. LOTRISONE [Concomitant]
     Active Substance: BETAMETHASONE DIPROPIONATE\CLOTRIMAZOLE
  36. MAGNESIUM OXIDE. [Concomitant]
     Active Substance: MAGNESIUM OXIDE
  37. NITROSTAT [Concomitant]
     Active Substance: NITROGLYCERIN
  38. TRIAMCINOLONE ACETONIDE. [Concomitant]
     Active Substance: TRIAMCINOLONE ACETONIDE
  39. ZOCOR [Concomitant]
     Active Substance: SIMVASTATIN

REACTIONS (3)
  - Urinary tract infection [Not Recovered/Not Resolved]
  - Blood pressure fluctuation [Unknown]
  - Infection [Not Recovered/Not Resolved]

NARRATIVE: CASE EVENT DATE: 201812
